FAERS Safety Report 6824371-1 (Version None)
Quarter: 2010Q3

REPORT INFORMATION
  Report Type: 
  Country: None (occurrence: None)
  Receive Date: 20100708
  Receipt Date: 20061023
  Transmission Date: 20110219
  Serious: No
  Sender: FDA-Public Use
  Company Number: US-PFIZER INC-2006129757

PATIENT
  Sex: Female
  Weight: 88.9 kg

DRUGS (6)
  1. CHANTIX [Suspect]
     Indication: SMOKING CESSATION THERAPY
     Dosage: DAILY: EVERY DAY
     Dates: start: 20061001
  2. CORTISONE [Concomitant]
  3. SYNTHROID [Concomitant]
  4. ZYRTEC [Concomitant]
  5. ALL OTHER THERAPEUTIC PRODUCTS [Concomitant]
  6. DDAVP [Concomitant]

REACTIONS (3)
  - FLATULENCE [None]
  - FLUID RETENTION [None]
  - MICTURITION FREQUENCY DECREASED [None]
